FAERS Safety Report 10243635 (Version 1)
Quarter: 2014Q2

REPORT INFORMATION
  Report Type: Spontaneous
  Country: DE (occurrence: None)
  Receive Date: 20140616
  Receipt Date: 20140616
  Transmission Date: 20141212
  Serious: Yes (Death)
  Sender: FDA-Public Use
  Company Number: DE-H14001-14-00046

PATIENT
  Age: 81 Year
  Sex: Male

DRUGS (1)
  1. AMIODARONE [Suspect]
     Indication: ATRIAL FIBRILLATION
     Dosage: 200 MG, 1 IN 1 D, UNKNOWN
     Dates: start: 20140314, end: 20140425

REACTIONS (2)
  - Acute interstitial pneumonitis [None]
  - Respiratory failure [None]
